FAERS Safety Report 6869998-6 (Version None)
Quarter: 2010Q3

REPORT INFORMATION
  Report Type: 
  Country: None (occurrence: None)
  Receive Date: 20100722
  Receipt Date: 20100714
  Transmission Date: 20110219
  Serious: Yes (Other)
  Sender: FDA-Public Use
  Company Number: JP-PFIZER INC-2010070658

PATIENT
  Age: 38 Year
  Sex: Male

DRUGS (1)
  1. SOLANAX [Suspect]
     Indication: DEPRESSION
     Dosage: 0.2 MG, 2X/DAY
     Route: 048
     Dates: start: 20091111

REACTIONS (2)
  - BLOOD KETONE BODY INCREASED [None]
  - POLYCYTHAEMIA VERA [None]
